FAERS Safety Report 14225673 (Version 1)
Quarter: 2017Q4

REPORT INFORMATION
  Report Type: Report from Study
  Country: JP (occurrence: JP)
  Receive Date: 20171127
  Receipt Date: 20171127
  Transmission Date: 20180321
  Serious: Yes (Hospitalization, Other)
  Sender: FDA-Public Use
  Company Number: JP-ASTELLAS-2016JP013494

PATIENT
  Age: 73 Year
  Sex: Male
  Weight: 56 kg

DRUGS (12)
  1. LOCOID [Concomitant]
     Active Substance: HYDROCORTISONE BUTYRATE
     Indication: DERMATITIS
     Dosage: ADEQUATE DOSE, ONCE OR TWICE DAILY
     Route: 061
     Dates: start: 20160329, end: 20160807
  2. SODIUM ALGINATE [Concomitant]
     Active Substance: SODIUM ALGINATE
     Indication: OESOPHAGITIS CHEMICAL
     Route: 048
     Dates: start: 20160808
  3. OMEPRAZOLE SODIUM [Concomitant]
     Active Substance: OMEPRAZOLE SODIUM
     Indication: OESOPHAGITIS CHEMICAL
     Route: 041
     Dates: start: 20160808, end: 20160812
  4. IOPAMIDOL [Concomitant]
     Active Substance: IOPAMIDOL
     Indication: SCAN WITH CONTRAST
     Route: 042
     Dates: start: 20160808, end: 20160808
  5. CEFTRIAXONE SODIUM. [Concomitant]
     Active Substance: CEFTRIAXONE SODIUM
     Indication: OESOPHAGITIS CHEMICAL
     Route: 041
     Dates: start: 20160808, end: 20160812
  6. BFLUID [Concomitant]
     Active Substance: AMINO ACIDS\DEXTROSE\ELECTROLYTES NOS\VITAMINS
     Indication: OESOPHAGITIS CHEMICAL
     Route: 041
     Dates: start: 20160808, end: 20160812
  7. TAMSULOSIN [Suspect]
     Active Substance: TAMSULOSIN
     Indication: BENIGN PROSTATIC HYPERPLASIA
     Dosage: 0.2 MG, ONCE DAILY, MORNING, NOT TAKING FOR 9 DAYS
     Route: 048
     Dates: start: 20160427, end: 20160902
  8. LIDOMEX [Concomitant]
     Active Substance: PREDNISOLONE VALERATE ACETATE
     Indication: DERMATITIS
     Dosage: ADEQUATE DOSE, ONCE OR TWICE DAILY
     Route: 061
     Dates: start: 20160329, end: 20160807
  9. MIRABEGRON [Suspect]
     Active Substance: MIRABEGRON
     Indication: HYPERTONIC BLADDER
     Dosage: 1 DF, ONCE DAILY, MORNING, NOT TAKING FOR 9 DAYS
     Route: 048
     Dates: start: 20160528, end: 20160902
  10. VONOPRAZAN [Concomitant]
     Active Substance: VONOPRAZAN
     Indication: OESOPHAGITIS CHEMICAL
     Route: 048
     Dates: start: 20160813
  11. BETANIS [Suspect]
     Active Substance: MIRABEGRON
     Indication: HYPERTONIC BLADDER
     Route: 048
     Dates: start: 20160910
  12. MEROPENEM. [Concomitant]
     Active Substance: MEROPENEM
     Indication: OESOPHAGITIS CHEMICAL
     Route: 041
     Dates: start: 20160813

REACTIONS (2)
  - Pneumonia aspiration [Recovered/Resolved]
  - Oesophagitis chemical [Recovering/Resolving]

NARRATIVE: CASE EVENT DATE: 20160808
